FAERS Safety Report 8757567 (Version 1)
Quarter: 2012Q4

REPORT INFORMATION
  Report Type: 
  Country: DK (occurrence: FR)
  Receive Date: 20120828
  Receipt Date: 20120828
  Transmission Date: 20130627
  Serious: Yes (Hospitalization)
  Sender: FDA-Public Use
  Company Number: FR-FRI-1000038156

PATIENT
  Age: 90 Year
  Sex: Female

DRUGS (11)
  1. ESCITALOPRAM [Suspect]
     Dosage: 5 mg
     Route: 048
     Dates: end: 20120802
  2. PREVISCAN [Suspect]
     Indication: ATRIAL FIBRILLATION
     Dosage: 0.25 DF
     Route: 048
     Dates: end: 20120802
  3. PREVISCAN [Suspect]
     Dosage: Fluindione Overdose NOS
  4. ATORVASTATINE [Concomitant]
     Dosage: 10 mg
     Dates: end: 20120802
  5. MEDIATENSYL [Concomitant]
     Dates: end: 20120730
  6. FUROSEMIDE [Concomitant]
     Dates: end: 20120730
  7. COAPROVEL [Concomitant]
     Dates: end: 20120730
  8. CELIPROLOL [Concomitant]
  9. FORLAX [Concomitant]
  10. IXPRIM [Concomitant]
  11. KALEORID [Concomitant]

REACTIONS (4)
  - Subdural haematoma [Not Recovered/Not Resolved]
  - Anaemia [Not Recovered/Not Resolved]
  - International normalised ratio increased [Not Recovered/Not Resolved]
  - Overdose [Not Recovered/Not Resolved]
